FAERS Safety Report 6229697-0 (Version None)
Quarter: 2009Q2

REPORT INFORMATION
  Report Type: 
  Country: None (occurrence: None)
  Receive Date: 20090615
  Receipt Date: 20090604
  Transmission Date: 20091009
  Serious: Yes (Hospitalization)
  Sender: FDA-Public Use
  Company Number: CH-JNJFOC-20090602273

PATIENT
  Age: 55 Year
  Sex: Female
  Weight: 62 kg

DRUGS (8)
  1. REMICADE [Suspect]
     Route: 042
  2. REMICADE [Suspect]
     Route: 042
  3. REMICADE [Suspect]
     Indication: ANKYLOSING SPONDYLITIS
     Route: 042
  4. METHOTREXATE [Suspect]
     Indication: ANKYLOSING SPONDYLITIS
     Route: 058
  5. HERBAL PREPARATION [Suspect]
     Indication: WEIGHT DECREASED
     Route: 048
  6. HERBAL PREPARATION [Suspect]
     Indication: OEDEMA
     Route: 048
  7. PARACETAMOL [Concomitant]
     Route: 048
  8. ZOLPIDEM TARTRATE [Concomitant]
     Route: 048

REACTIONS (8)
  - DIARRHOEA [None]
  - DRY MOUTH [None]
  - LYMPHADENOPATHY [None]
  - OEDEMA [None]
  - POLYDIPSIA [None]
  - PSORIASIS [None]
  - PYREXIA [None]
  - RASH PUSTULAR [None]
